FAERS Safety Report 6557939-0 (Version None)
Quarter: 2010Q1

REPORT INFORMATION
  Report Type: 
  Country: None (occurrence: None)
  Receive Date: 20100126
  Receipt Date: 20100114
  Transmission Date: 20100710
  Serious: Yes (Hospitalization)
  Sender: FDA-Public Use
  Company Number: TRP_06347_2009

PATIENT
  Sex: Male
  Weight: 97.1151 kg

DRUGS (10)
  1. COPEGUS [Suspect]
     Indication: HEPATITIS C
     Dosage: SEE IMAGE
     Route: 048
     Dates: start: 20090616, end: 20091022
  2. COPEGUS [Suspect]
     Indication: HEPATITIS C
     Dosage: SEE IMAGE
     Route: 048
     Dates: start: 20091029, end: 20091030
  3. PEGASYS [Suspect]
     Indication: HEPATITIS C
     Dosage: (180 UG, 1X/WEEK SUBCUTANEOUS), (180 UG 1X/WEEK SUBCUTANEOUS)
     Route: 058
     Dates: start: 20090616, end: 20091022
  4. PEGASYS [Suspect]
     Indication: HEPATITIS C
     Dosage: (180 UG, 1X/WEEK SUBCUTANEOUS), (180 UG 1X/WEEK SUBCUTANEOUS)
     Route: 058
     Dates: start: 20091029, end: 20091030
  5. ALINIA [Suspect]
     Indication: HEPATITIS C
     Dosage: (500 MG, DAILY ORAL), (500 MG, DAILY ORAL)
     Route: 048
     Dates: start: 20090616, end: 20091022
  6. ALINIA [Suspect]
     Indication: HEPATITIS C
     Dosage: (500 MG, DAILY ORAL), (500 MG, DAILY ORAL)
     Route: 048
     Dates: start: 20091029, end: 20091030
  7. TRUVADA [Concomitant]
  8. BENADRYL /00673901/ [Concomitant]
  9. NORCO [Concomitant]
  10. ATRIPLA [Concomitant]

REACTIONS (25)
  - BLOOD URINE PRESENT [None]
  - CHEST PAIN [None]
  - CONDITION AGGRAVATED [None]
  - DECREASED APPETITE [None]
  - DEHYDRATION [None]
  - DIARRHOEA [None]
  - DIZZINESS [None]
  - DYSPNOEA [None]
  - FATIGUE [None]
  - HEADACHE [None]
  - HEPATITIS C [None]
  - HYPERHIDROSIS [None]
  - HYPOPHAGIA [None]
  - INSOMNIA [None]
  - LOSS OF CONSCIOUSNESS [None]
  - MEMORY IMPAIRMENT [None]
  - NIGHT SWEATS [None]
  - NO THERAPEUTIC RESPONSE [None]
  - ORTHOSTATIC HYPOTENSION [None]
  - PANCYTOPENIA [None]
  - PRESYNCOPE [None]
  - PRURITUS [None]
  - SLUGGISHNESS [None]
  - TEMPERATURE INTOLERANCE [None]
  - WEIGHT DECREASED [None]
